FAERS Safety Report 9176062 (Version 1)
Quarter: 2013Q1

REPORT INFORMATION
  Report Type: Spontaneous
  Country: ES (occurrence: ES)
  Receive Date: 20130320
  Receipt Date: 20130320
  Transmission Date: 20140127
  Serious: Yes (Hospitalization, Other)
  Sender: FDA-Public Use
  Company Number: ES-ELI_LILLY_AND_COMPANY-ES201303005887

PATIENT
  Age: 72 Year
  Sex: Female

DRUGS (1)
  1. FORSTEO [Suspect]
     Dosage: UNK, UNKNOWN
     Route: 065
     Dates: start: 201011

REACTIONS (6)
  - Uterine cancer [Unknown]
  - Ovarian cancer [Unknown]
  - Appendix cancer [Unknown]
  - Metastasis [Unknown]
  - Asthenia [Unknown]
  - Malaise [Unknown]
